FAERS Safety Report 17153825 (Version 1)
Quarter: 2019Q4

REPORT INFORMATION
  Report Type: Spontaneous
  Country: FR (occurrence: FR)
  Receive Date: 20191213
  Receipt Date: 20191213
  Transmission Date: 20200122
  Serious: Yes (Hospitalization)
  Sender: FDA-Public Use
  Company Number: FR-MYLANLABS-2019M1122701

PATIENT
  Age: 81 Year
  Sex: Female
  Weight: 95 kg

DRUGS (23)
  1. FLAMMAZINE [Suspect]
     Active Substance: SILVER SULFADIAZINE
     Indication: INFECTION
     Dosage: 1-0-1
     Route: 003
     Dates: start: 20190627, end: 20190702
  2. MORPHINE AGUETTANT [Suspect]
     Active Substance: MORPHINE HYDROCHLORIDE
     Indication: PAIN
     Dosage: A AS NECESSARY SI BESOIN (MAX 10 MG/JOUR)
     Route: 042
     Dates: start: 20190621
  3. VANCOMYCINE SANDOZ [Suspect]
     Active Substance: VANCOMYCIN
     Indication: INFECTION
     Dosage: 2000 MILLIGRAM, QD, 2-0-2
     Route: 042
     Dates: start: 20190621, end: 20190628
  4. HEMIGOXINE NATIVELLE [Concomitant]
     Active Substance: DIGOXIN
     Indication: CARDIAC FAILURE
     Dosage: 1-0-0
     Route: 048
     Dates: end: 20190702
  5. ALPRAZOLAM MYLAN 0,25 MG [Suspect]
     Active Substance: ALPRAZOLAM
     Indication: ANXIETY
     Dosage: 0-0-0-1
     Route: 048
     Dates: start: 20190620, end: 20190702
  6. CONTRAMAL [Suspect]
     Active Substance: TRAMADOL HYDROCHLORIDE
     Indication: PAIN
     Dosage: 200 MILLIGRAM, QD, 1-1-1-1
     Route: 048
     Dates: start: 20190621, end: 20190702
  7. TOPALGIC                           /00599202/ [Suspect]
     Active Substance: TRAMADOL HYDROCHLORIDE
     Indication: PAIN
     Dosage: 100 MILLIGRAM, TOTAL
     Route: 042
     Dates: start: 20190621, end: 20190621
  8. NEFOPAM MYLAN [Suspect]
     Active Substance: NEFOPAM
     Indication: PAIN
     Dosage: 20 MILLIGRAM, TOTAL
     Route: 042
     Dates: start: 20190621, end: 20190621
  9. ACTISKENAN [Suspect]
     Active Substance: MORPHINE SULFATE
     Indication: PAIN
     Dosage: 1 AS NECESSARY SI BESOIN (MAX 6/JOUR)
     Route: 048
     Dates: start: 20190621, end: 20190702
  10. CEFAZOLINE PANPHARMA [Suspect]
     Active Substance: CEFAZOLIN SODIUM
     Indication: ANTI-INFECTIVE THERAPY
     Dosage: 4 GRAM, TOTAL
     Route: 042
     Dates: start: 20190621, end: 20190621
  11. PANTOPRAZOLE SODIUM. [Concomitant]
     Active Substance: PANTOPRAZOLE SODIUM
     Indication: PEPTIC ULCER
     Dosage: 40 MILLIGRAM, QD
     Route: 048
  12. ONDANSETRON ACCORD [Suspect]
     Active Substance: ONDANSETRON
     Indication: NAUSEA
     Dosage: 1 AS NECESSARY SI BESOIN (MAX1/JOUR)
     Route: 042
     Dates: start: 20190621, end: 20190622
  13. LOVENOX [Suspect]
     Active Substance: ENOXAPARIN SODIUM
     Indication: THROMBOSIS
     Dosage: 2000 INTERNATIONAL UNIT, QD
     Route: 058
     Dates: start: 20190620, end: 20190702
  14. GENTAMICINE PANPHARMA [Suspect]
     Active Substance: GENTAMICIN
     Indication: INFECTION
     Dosage: 240 MILLIGRAM, QD, 3-0-0
     Route: 030
     Dates: start: 20190621, end: 20190628
  15. DEXAMETHASONE MYLAN [Suspect]
     Active Substance: DEXAMETHASONE
     Indication: HYPERSENSITIVITY
     Dosage: 4 MILLIGRAM, TOTAL
     Route: 042
     Dates: start: 20190621, end: 20190621
  16. PROPOFOL FRESENIUS [Suspect]
     Active Substance: PROPOFOL
     Indication: ANAESTHESIA
     Dosage: 150 MILLIGRAM, TOTAL
     Route: 042
     Dates: start: 20190621, end: 20190621
  17. PERFALGAN [Suspect]
     Active Substance: ACETAMINOPHEN
     Indication: PAIN
     Dosage: 1000 MILLIGRAM, TOTAL
     Route: 042
     Dates: start: 20190621, end: 20190621
  18. ATRACURIUM HOSPIRA [Suspect]
     Active Substance: ATRACURIUM BESYLATE
     Indication: ANAESTHESIA
     Dosage: 25 MILLIGRAM, TOTAL
     Route: 042
     Dates: start: 20190621, end: 20190621
  19. DOLIPRANE [Suspect]
     Active Substance: ACETAMINOPHEN
     Indication: PAIN
     Dosage: 2-2-2-2
     Route: 048
     Dates: start: 20190621, end: 20190702
  20. REMIFENTANIL MYLAN [Suspect]
     Active Substance: REMIFENTANIL
     Indication: ANAESTHESIA
     Dosage: 169 MICROGRAM, TOTAL
     Route: 042
     Dates: start: 20190621, end: 20190621
  21. PIPERACILLIN AND TAZOBACTAM [Suspect]
     Active Substance: PIPERACILLIN SODIUM\TAZOBACTAM SODIUM
     Indication: INFECTION
     Dosage: 2 DOSAGE FORM, QD
     Route: 042
     Dates: start: 20190629, end: 20190702
  22. LASILIX FAIBLE [Concomitant]
     Active Substance: FUROSEMIDE
     Indication: CARDIAC FAILURE
     Dosage: 1-0-0
     Route: 048
  23. ALDACTONE [Concomitant]
     Active Substance: SPIRONOLACTONE
     Indication: CARDIAC FAILURE
     Dosage: 1-0-0
     Route: 048
     Dates: end: 20190702

REACTIONS (1)
  - Stevens-Johnson syndrome [Recovering/Resolving]

NARRATIVE: CASE EVENT DATE: 20190630
